FAERS Safety Report 24277388 (Version 2)
Quarter: 2024Q3

REPORT INFORMATION
  Report Type: Spontaneous
  Country: US (occurrence: US)
  Receive Date: 20240903
  Receipt Date: 20240925
  Transmission Date: 20241017
  Serious: No
  Sender: ASTELLAS
  Company Number: US-ASTELLAS-2024-AER-002135

PATIENT
  Age: 67 Year
  Sex: Male

DRUGS (1)
  1. XTANDI [Suspect]
     Active Substance: ENZALUTAMIDE
     Indication: Prostate cancer
     Dosage: 160 MG UNKNOWN FREQUENCY
     Route: 048
     Dates: start: 20240227, end: 20240819

REACTIONS (1)
  - Skin odour abnormal [Recovered/Resolved]

NARRATIVE: CASE EVENT DATE: 20240501
